FAERS Safety Report 7339214-X (Version None)
Quarter: 2011Q1

REPORT INFORMATION
  Report Type: 
  Country: None (occurrence: None)
  Receive Date: 20110308
  Receipt Date: 20110301
  Transmission Date: 20110831
  Serious: Yes (Other)
  Sender: FDA-Public Use
  Company Number: CH-US-EMD SERONO, INC.-7041190

PATIENT
  Sex: Male

DRUGS (1)
  1. REBIF [Suspect]
     Indication: MULTIPLE SCLEROSIS
     Route: 058
     Dates: start: 20090203, end: 20100920

REACTIONS (3)
  - HEPATIC STEATOSIS [None]
  - SERUM FERRITIN INCREASED [None]
  - LIVER FUNCTION TEST ABNORMAL [None]
